FAERS Safety Report 23375164 (Version 3)
Quarter: 2024Q1

REPORT INFORMATION
  Report Type: Spontaneous
  Country: US (occurrence: US)
  Receive Date: 20240106
  Receipt Date: 20240218
  Transmission Date: 20240410
  Serious: Yes (Hospitalization, Other)
  Sender: FDA-Public Use
  Company Number: US-BIOVITRUM-2023-US-020517

PATIENT
  Age: 7 Decade
  Sex: Female

DRUGS (12)
  1. FLUCONAZOLE [Interacting]
     Active Substance: FLUCONAZOLE
     Indication: Infection prophylaxis
     Dosage: 400 MILLIGRAM, ONCE A DAY (DAY 8-DAY 9 )
     Route: 065
  2. FLUCONAZOLE [Interacting]
     Active Substance: FLUCONAZOLE
     Dosage: 200 MILLIGRAM, ONCE A DAY (DAY 4-DAY 7)
     Route: 048
  3. CIPROFLOXACIN [Interacting]
     Active Substance: CIPROFLOXACIN
     Indication: Infection prophylaxis
     Dosage: 1000 MILLIGRAM, ONCE A DAY (DAY 8)
     Route: 048
  4. CIPROFLOXACIN [Interacting]
     Active Substance: CIPROFLOXACIN
     Dosage: 500 MILLIGRAM, ONCE A DAY (DAY 9)
     Route: 048
  5. CIPROFLOXACIN [Interacting]
     Active Substance: CIPROFLOXACIN
     Dosage: 500 MILLIGRAM, ONCE A DAY (DAY 4-DAY 6 )
     Route: 065
  6. CIPROFLOXACIN [Interacting]
     Active Substance: CIPROFLOXACIN
     Dosage: 700 MILLIGRAM, ONCE A DAY (DAY7 )
     Route: 065
  7. CIPROFLOXACIN [Interacting]
     Active Substance: CIPROFLOXACIN
     Dosage: 750 MILLIGRAM, ONCE A DAY
     Route: 048
  8. CIPROFLOXACIN [Interacting]
     Active Substance: CIPROFLOXACIN
     Dosage: 250 MILLIGRAM, ONCE A DAY
     Route: 048
  9. AVATROMBOPAG [Interacting]
     Active Substance: AVATROMBOPAG
     Indication: Immune thrombocytopenia
     Dosage: 20 MILLIGRAM, ONCE A DAY
     Route: 048
  10. AVATROMBOPAG [Interacting]
     Active Substance: AVATROMBOPAG
     Dosage: 40 MILLIGRAM, ONCE A DAY
     Route: 048
  11. RITUXIMAB [Concomitant]
     Active Substance: RITUXIMAB
     Indication: Product used for unknown indication
     Dosage: 20 MILLIGRAM, ONCE A DAY
     Route: 065
  12. CEFEPIME [Concomitant]
     Active Substance: CEFEPIME HYDROCHLORIDE
     Indication: Product used for unknown indication
     Dosage: 20 MILLIGRAM, ONCE A DAY
     Route: 065

REACTIONS (3)
  - Lactic acidosis [Recovered/Resolved]
  - Metabolic acidosis [Recovered/Resolved]
  - Drug interaction [Recovered/Resolved]
